FAERS Safety Report 9429542 (Version 1)
Quarter: 2013Q3

REPORT INFORMATION
  Report Type: Spontaneous
  Country: US (occurrence: US)
  Receive Date: 20130730
  Receipt Date: 20130730
  Transmission Date: 20140515
  Serious: No
  Sender: FDA-Public Use
  Company Number: US-ABBOTT-13P-163-1064407-00

PATIENT
  Sex: Male
  Weight: 71.73 kg

DRUGS (8)
  1. NIASPAN (COATED) [Suspect]
     Indication: BLOOD CHOLESTEROL INCREASED
     Dosage: AT BEDTIME
     Route: 048
     Dates: start: 2009
  2. NIASPAN (COATED) [Suspect]
     Dosage: AT BEDTIME
     Dates: start: 2009, end: 2009
  3. ASPIRIN [Concomitant]
     Indication: MYOCARDIAL INFARCTION
     Dosage: IN THE MORNING
  4. ASPIRIN [Concomitant]
     Indication: ADJUVANT THERAPY
  5. PLAVIX [Concomitant]
     Indication: MYOCARDIAL INFARCTION
  6. ATORVASTATIN [Concomitant]
     Indication: BLOOD CHOLESTEROL INCREASED
  7. METOPROLOL [Concomitant]
     Indication: MYOCARDIAL INFARCTION
  8. LISINOPRIL [Concomitant]
     Indication: MYOCARDIAL INFARCTION

REACTIONS (4)
  - Wrong technique in drug usage process [Unknown]
  - Pruritus [Not Recovered/Not Resolved]
  - Paraesthesia [Not Recovered/Not Resolved]
  - Flushing [Not Recovered/Not Resolved]
